FAERS Safety Report 10704555 (Version 2)
Quarter: 2015Q1

REPORT INFORMATION
  Report Type: Spontaneous
  Country: AU (occurrence: AU)
  Receive Date: 20150112
  Receipt Date: 20150202
  Transmission Date: 20150721
  Serious: Yes (Death, Hospitalization)
  Sender: FDA-Public Use
  Company Number: AU-CELGENE-AUS-2014104923

PATIENT
  Age: 80 Year
  Sex: Female
  Weight: 45 kg

DRUGS (2)
  1. GEMCITABINE [Concomitant]
     Active Substance: GEMCITABINE\GEMCITABINE HYDROCHLORIDE
     Indication: PANCREATIC CARCINOMA METASTATIC
     Route: 065
  2. ABRAXANE [Suspect]
     Active Substance: PACLITAXEL
     Indication: PANCREATIC CARCINOMA METASTATIC
     Route: 065
     Dates: start: 20141009, end: 20141013

REACTIONS (1)
  - Oesophageal varices haemorrhage [Fatal]

NARRATIVE: CASE EVENT DATE: 20141011
